FAERS Safety Report 5744064-1 (Version None)
Quarter: 2008Q2

REPORT INFORMATION
  Report Type: 
  Country: None (occurrence: None)
  Receive Date: 20080516
  Receipt Date: 20080516
  Transmission Date: 20081010
  Serious: Yes (Hospitalization, Other)
  Sender: FDA-Public Use
  Company Number: None

PATIENT
  Age: 66 Year
  Sex: Male

DRUGS (2)
  1. CLOPIDOGREL [Suspect]
     Dosage: 75 MG QD
     Dates: start: 20080102, end: 20080115
  2. ASPIRIN [Suspect]
     Dosage: 81 MG QD
     Dates: start: 20080102, end: 20080115

REACTIONS (2)
  - HAEMORRHAGE URINARY TRACT [None]
  - URINARY RETENTION [None]
